FAERS Safety Report 7102501-4 (Version None)
Quarter: 2010Q4

REPORT INFORMATION
  Report Type: 
  Country: None (occurrence: None)
  Receive Date: 20101115
  Receipt Date: 20101104
  Transmission Date: 20110411
  Serious: Yes (Other)
  Sender: FDA-Public Use
  Company Number: US-ROCHE-739582

PATIENT
  Age: 62 Year
  Sex: Male

DRUGS (6)
  1. BEVACIZUMAB [Suspect]
     Route: 042
     Dates: start: 20080512
  2. CARBOPLATIN [Suspect]
     Route: 042
     Dates: start: 20080512
  3. PACLITAXEL [Suspect]
     Route: 042
     Dates: start: 20080512
  4. FENTANYL [Suspect]
     Route: 065
     Dates: start: 20080505, end: 20080613
  5. MOTRIN [Concomitant]
  6. MIRALAX [Concomitant]
     Dates: start: 20080606

REACTIONS (2)
  - CONFUSIONAL STATE [None]
  - HALLUCINATION [None]
